FAERS Safety Report 23377615 (Version 3)
Quarter: 2024Q3

REPORT INFORMATION
  Report Type: Spontaneous
  Country: US (occurrence: US)
  Receive Date: 20240108
  Receipt Date: 20240930
  Transmission Date: 20241016
  Serious: Yes (Other)
  Sender: SANOFI AVENTIS
  Company Number: US-SA-SAC20240105000541

PATIENT
  Age: 58 Year
  Sex: Female
  Weight: 55.79 kg

DRUGS (8)
  1. DUPIXENT [Suspect]
     Active Substance: DUPILUMAB
     Indication: Dermatitis atopic
     Dosage: UNKNOWN LOADING DOSE, 1X
     Route: 058
     Dates: start: 2020, end: 2020
  2. DUPIXENT [Suspect]
     Active Substance: DUPILUMAB
     Indication: Eczema
     Dosage: 300 MG, QOW
     Route: 058
     Dates: start: 2020
  3. DUPIXENT [Suspect]
     Active Substance: DUPILUMAB
     Indication: Dermatitis atopic
     Dosage: 300 MG, QOW
     Route: 058
  4. QVAR REDIHALER [Concomitant]
     Active Substance: BECLOMETHASONE DIPROPIONATE
  5. MONTELUKAST SODIUM [Concomitant]
     Active Substance: MONTELUKAST\MONTELUKAST SODIUM
  6. FAMOTIDINE [Concomitant]
     Active Substance: FAMOTIDINE
  7. PANTOPRAZOLE SODIUM [Concomitant]
     Active Substance: PANTOPRAZOLE SODIUM
  8. MODERNA COVID-19 VACCINE [Concomitant]
     Active Substance: ELASOMERAN

REACTIONS (7)
  - Choking [Unknown]
  - Gastrooesophageal reflux disease [Not Recovered/Not Resolved]
  - Cough [Not Recovered/Not Resolved]
  - Injection site pain [Unknown]
  - Accidental exposure to product [Unknown]
  - Exposure via skin contact [Unknown]
  - Incorrect disposal of product [Unknown]

NARRATIVE: CASE EVENT DATE: 20230101
